FAERS Safety Report 6184806-7 (Version None)
Quarter: 2009Q2

REPORT INFORMATION
  Report Type: 
  Country: None (occurrence: None)
  Receive Date: 20090508
  Receipt Date: 20090429
  Transmission Date: 20091009
  Serious: Yes (Life-Threatening)
  Sender: FDA-Public Use
  Company Number: CH-ELI_LILLY_AND_COMPANY-CH200904007039

PATIENT
  Age: 52 Year
  Sex: Female

DRUGS (2)
  1. FLUCTINE [Suspect]
     Indication: DEPRESSION
     Dosage: 40 MG, DAILY (1/D)
     Route: 048
     Dates: start: 20040101, end: 20090403
  2. METHADONE [Interacting]
     Indication: MENTAL DISORDER
     Dosage: 150 MG, DAILY (1/D)
     Route: 048
     Dates: start: 19990101, end: 20090402

REACTIONS (6)
  - BRADYCARDIA [None]
  - DRUG INTERACTION [None]
  - FATIGUE [None]
  - HYPOKALAEMIA [None]
  - LONG QT SYNDROME [None]
  - MALAISE [None]
